FAERS Safety Report 10456467 (Version 1)
Quarter: 2014Q3

REPORT INFORMATION
  Report Type: Spontaneous
  Country: DE (occurrence: DE)
  Receive Date: 20140916
  Receipt Date: 20140916
  Transmission Date: 20150326
  Serious: Yes (Congenital Anomaly, Other)
  Sender: FDA-Public Use
  Company Number: DE-SA-2014SA121177

PATIENT
  Age: 1 Day
  Sex: Female
  Weight: 3.5 kg

DRUGS (6)
  1. DOLANTINA [Suspect]
     Active Substance: MEPERIDINE HYDROCHLORIDE
     Indication: LABOUR PAIN
     Route: 064
     Dates: start: 20130320, end: 20130320
  2. MIRTAZAPINE. [Suspect]
     Active Substance: MIRTAZAPINE
     Indication: DEPRESSION
     Route: 064
     Dates: start: 20120603, end: 20130320
  3. BUSCOPAN [Suspect]
     Active Substance: BUTYLSCOPOLAMINE BROMIDE
     Indication: LABOUR PAIN
     Route: 064
     Dates: start: 20130320, end: 20130320
  4. FOLIC ACID. [Concomitant]
     Active Substance: FOLIC ACID
     Indication: PROPHYLAXIS OF NEURAL TUBE DEFECT
     Route: 064
     Dates: start: 20120615, end: 20121015
  5. TAVOR [Suspect]
     Active Substance: LORAZEPAM
     Indication: DEPRESSION
     Route: 064
     Dates: start: 20120603, end: 20120815
  6. TREVILOR RETARD [Suspect]
     Active Substance: VENLAFAXINE HYDROCHLORIDE
     Indication: DEPRESSION
     Route: 064
     Dates: start: 20120622, end: 20120815

REACTIONS (12)
  - Patent ductus arteriosus [Unknown]
  - Cardiac arrest neonatal [Recovered/Resolved]
  - Hypotonia neonatal [Recovered/Resolved]
  - Encephalopathy neonatal [Unknown]
  - Caesarean section [None]
  - Brain oedema [None]
  - Neonatal asphyxia [Recovered/Resolved]
  - Hypoxic-ischaemic encephalopathy [None]
  - Convulsion neonatal [Recovered/Resolved]
  - Atrial septal defect [Unknown]
  - Premature rupture of membranes [None]
  - Maternal drugs affecting foetus [None]

NARRATIVE: CASE EVENT DATE: 20130320
